FAERS Safety Report 21922725 (Version 1)
Quarter: 2023Q1

REPORT INFORMATION
  Report Type: Spontaneous
  Country: GB (occurrence: GB)
  Receive Date: 20230128
  Receipt Date: 20230128
  Transmission Date: 20230417
  Serious: Yes (Disabling)
  Sender: FDA-Public Use
  Company Number: None

PATIENT
  Age: 42 Year
  Sex: Female
  Weight: 101 kg

DRUGS (9)
  1. TOPIRAMATE [Suspect]
     Active Substance: TOPIRAMATE
     Indication: Product used for unknown indication
     Dosage: TAKE ONE AT NIGHT
     Dates: start: 20221220
  2. AMITRIPTYLINE HYDROCHLORIDE [Concomitant]
     Active Substance: AMITRIPTYLINE HYDROCHLORIDE
     Dosage: 1-2 TABLETS AT NIGHT
     Dates: start: 20220818
  3. AMOXICILLIN [Concomitant]
     Active Substance: AMOXICILLIN
     Dosage: TAKE ONE 3 TIMES/DAY FOR 5 DAYS (COMPLETE THE F...
     Dates: start: 20230116
  4. CANDESARTAN [Concomitant]
     Active Substance: CANDESARTAN
     Dosage: TAKE ONE TABLET ONCE DAILY
     Dates: start: 20220818
  5. BECLOMETHASONE\FORMOTEROL [Concomitant]
     Active Substance: BECLOMETHASONE\FORMOTEROL
     Dosage: 2 PUFFS TWICE PER DAY. NO MORE THAN 8 PUFFS IN ...
     Dates: start: 20220818
  6. NAPROXEN [Concomitant]
     Active Substance: NAPROXEN
     Dosage: ONE TO BE TAKEN TWICE A DAY AFTER FOOD
     Dates: start: 20220818
  7. OMEPRAZOLE [Concomitant]
     Active Substance: OMEPRAZOLE
     Dosage: TAKE ONE DAILY
     Dates: start: 20220818
  8. ACETAMINOPHEN\CODEINE PHOSPHATE [Concomitant]
     Active Substance: ACETAMINOPHEN\CODEINE PHOSPHATE
     Dosage: TAKE 1 OR 2 4 TIMES/DAY: MAX 8/DAY, USE SPARINGLY
     Dates: start: 20220818
  9. ZOLMITRIPTAN [Concomitant]
     Active Substance: ZOLMITRIPTAN
     Dosage: ONE SPRAY INTO NOSTRIL TO BE REPEATED NOT LESS
     Route: 045
     Dates: start: 20220818

REACTIONS (1)
  - Dysuria [Unknown]

NARRATIVE: CASE EVENT DATE: 20230116
